FAERS Safety Report 9087309 (Version 1)
Quarter: 2013Q1

REPORT INFORMATION
  Report Type: Spontaneous
  Country: BR (occurrence: BR)
  Receive Date: 20130131
  Receipt Date: 20130131
  Transmission Date: 20140127
  Serious: Yes (Hospitalization)
  Sender: FDA-Public Use
  Company Number: BR-PFIZER INC-2013037724

PATIENT
  Age: 48 Year
  Sex: Female

DRUGS (1)
  1. VIAGRA [Suspect]
     Dosage: 50 MG, 3X/DAY (EVERY 8 HOURS)
     Route: 048
     Dates: start: 20121211

REACTIONS (2)
  - Cardiac valve disease [Unknown]
  - Off label use [Not Recovered/Not Resolved]
